FAERS Safety Report 25768408 (Version 1)
Quarter: 2025Q3

REPORT INFORMATION
  Report Type: Spontaneous
  Country: US (occurrence: US)
  Receive Date: 20250905
  Receipt Date: 20250905
  Transmission Date: 20251021
  Serious: No
  Sender: DOMPE FARMACEUTICI
  Company Number: US-FARMAPROD-202506-2148

PATIENT
  Sex: Female

DRUGS (2)
  1. OXERVATE [Suspect]
     Active Substance: CENEGERMIN-BKBJ
     Indication: Neurotrophic keratopathy
     Route: 047
     Dates: start: 20250616
  2. EYSUVIS [Concomitant]
     Active Substance: LOTEPREDNOL ETABONATE

REACTIONS (3)
  - Eye pain [Recovering/Resolving]
  - Eyelid pain [Unknown]
  - Swelling of eyelid [Unknown]
